FAERS Safety Report 7031636-X (Version None)
Quarter: 2010Q4

REPORT INFORMATION
  Report Type: 
  Country: None (occurrence: None)
  Receive Date: 20101006
  Receipt Date: 20101006
  Transmission Date: 20110411
  Serious: Yes (Death, Other)
  Sender: FDA-Public Use
  Company Number: None

PATIENT
  Age: 75 Year
  Sex: Male
  Weight: 64.8 kg

DRUGS (2)
  1. ZOLPIDEM [Suspect]
     Indication: AGITATION
     Dosage: 5 MG PRN PO
     Route: 048
     Dates: start: 20101002, end: 20101003
  2. ZOLPIDEM [Suspect]
     Indication: INSOMNIA
     Dosage: 5 MG PRN PO
     Route: 048
     Dates: start: 20101002, end: 20101003

REACTIONS (3)
  - AGGRESSION [None]
  - AGITATION [None]
  - DELIRIUM [None]
